FAERS Safety Report 9723697 (Version 1)
Quarter: 2013Q4

REPORT INFORMATION
  Report Type: Spontaneous
  Country: RO (occurrence: RO)
  Receive Date: 20131202
  Receipt Date: 20131202
  Transmission Date: 20140711
  Serious: Yes (Life-Threatening, Hospitalization)
  Sender: FDA-Public Use
  Company Number: RO-GLAXOSMITHKLINE-B0949376A

PATIENT
  Age: 13 Year
  Sex: Female

DRUGS (1)
  1. RYTMONORM [Suspect]
     Indication: PRODUCT USED FOR UNKNOWN INDICATION
     Route: 048

REACTIONS (20)
  - Grand mal convulsion [Recovered/Resolved]
  - Coma [Recovered/Resolved]
  - Electrocardiogram QRS complex prolonged [Recovered/Resolved]
  - Electrocardiogram QT prolonged [Recovered/Resolved]
  - Depressed level of consciousness [Unknown]
  - Loss of consciousness [Unknown]
  - Somnolence [Unknown]
  - Arrhythmia [Unknown]
  - Hypotension [Unknown]
  - Sinus arrhythmia [Unknown]
  - Atrioventricular block [Unknown]
  - Respiratory rate decreased [Unknown]
  - Hypotonia [Unknown]
  - Mydriasis [Unknown]
  - Cyanosis [Unknown]
  - Pupillary reflex impaired [Unknown]
  - Nodal rhythm [Unknown]
  - Metabolic acidosis [Unknown]
  - Oxygen saturation decreased [Unknown]
  - Body temperature decreased [Unknown]
